FAERS Safety Report 13035812 (Version 2)
Quarter: 2017Q1

REPORT INFORMATION
  Report Type: Spontaneous
  Country: US (occurrence: US)
  Receive Date: 20161216
  Receipt Date: 20170110
  Transmission Date: 20170428
  Serious: No
  Sender: FDA-Public Use
  Company Number: US-PFIZER INC-2016573515

PATIENT
  Sex: Female

DRUGS (1)
  1. XELJANZ XR [Suspect]
     Active Substance: TOFACITINIB CITRATE
     Dosage: 11 MG, UNK

REACTIONS (7)
  - Musculoskeletal pain [Unknown]
  - Eye irritation [Unknown]
  - Anaemia [Unknown]
  - Ocular hyperaemia [Unknown]
  - Arthralgia [Unknown]
  - Insomnia [Unknown]
  - Peripheral swelling [Unknown]
